FAERS Safety Report 5937758-6 (Version None)
Quarter: 2008Q4

REPORT INFORMATION
  Report Type: 
  Country: None (occurrence: None)
  Receive Date: 20081031
  Receipt Date: 20081021
  Transmission Date: 20090506
  Serious: Yes (Other)
  Sender: FDA-Public Use
  Company Number: DE-GENENTECH-256267

PATIENT
  Sex: Female
  Weight: 58 kg

DRUGS (11)
  1. XOLAIR [Suspect]
     Indication: ASTHMA
     Dosage: 150 MG, UNK
     Route: 058
     Dates: start: 20060101
  2. XOLAIR [Suspect]
     Indication: INFECTIVE EXACERBATION OF CHRONIC OBSTRUCTIVE AIRWAYS DISEASE
  3. BETA-2 AGONIST NOS [Suspect]
     Indication: CHRONIC OBSTRUCTIVE PULMONARY DISEASE
  4. ANTIBIOTICS (NOT SPECIFIED) [Concomitant]
     Indication: NASOPHARYNGITIS
  5. BECLOMETHASONE DIPROPIONATE [Concomitant]
     Indication: DRUG USE FOR UNKNOWN INDICATION
  6. SPIRIVA [Concomitant]
     Indication: DRUG USE FOR UNKNOWN INDICATION
  7. SEREVENT [Concomitant]
     Indication: DRUG USE FOR UNKNOWN INDICATION
  8. PREDNISOLONE [Concomitant]
     Indication: INFECTION
     Dosage: 50 MG, UNK
     Dates: start: 20080107, end: 20080117
  9. FORADIL [Concomitant]
     Indication: DRUG USE FOR UNKNOWN INDICATION
  10. SALBUTAMOL [Concomitant]
     Indication: DRUG USE FOR UNKNOWN INDICATION
  11. CLARITHROMYCIN [Concomitant]
     Indication: INFECTION
     Dosage: 250 MG, BID
     Dates: start: 20080107, end: 20080113

REACTIONS (2)
  - ACCOMMODATION DISORDER [None]
  - INFECTION [None]
